FAERS Safety Report 15366842 (Version 1)
Quarter: 2018Q3

REPORT INFORMATION
  Report Type: Spontaneous
  Country: PT (occurrence: PT)
  Receive Date: 20180910
  Receipt Date: 20180910
  Transmission Date: 20181010
  Serious: Yes (Disabling)
  Sender: FDA-Public Use
  Company Number: PT-PFIZER INC-2018359664

PATIENT
  Age: 67 Year
  Sex: Male

DRUGS (9)
  1. PRAVAFENIX [Concomitant]
     Active Substance: FENOFIBRATE\PRAVASTATIN
     Dosage: 1 DF, 1X/DAY (AT NIGHT)
  2. LAVENTAIR [Concomitant]
     Dosage: 55 UG, 1X/DAY
  3. PANTOPRAZOLE [Concomitant]
     Active Substance: PANTOPRAZOLE
     Dosage: 20 MG, 1X/DAY (FASTING)
  4. MYSOLINE [Concomitant]
     Active Substance: PRIMIDONE
     Dosage: UNK UNK, 1X/DAY (1/8 TABLET AT NIGHT)
  5. CO?DIOVAN [Concomitant]
     Active Substance: HYDROCHLOROTHIAZIDE\VALSARTAN
     Dosage: 1 DF (12.5MG+160MG), 1X/DAY (IN THE MORNING)
  6. METFORMIN [Concomitant]
     Active Substance: METFORMIN HYDROCHLORIDE
     Dosage: 500 MG, 1X/DAY (AT LUNCH)
  7. CLOPIDOGREL [Concomitant]
     Active Substance: CLOPIDOGREL BISULFATE
     Dosage: 75 MG, 1X/DAY (AT LUNCH)
  8. DIPLEXIL [Suspect]
     Active Substance: VALPROATE SODIUM
     Indication: EPILEPSY
     Dosage: 500 MG, 2X/DAY (IN THE MORNING AND AT NIGHT)
     Route: 048
     Dates: start: 20180131, end: 20180515
  9. SERTRALINE [Suspect]
     Active Substance: SERTRALINE HYDROCHLORIDE
     Dosage: 50 MG, 1X/DAY (AT DINNER)
     Route: 048
     Dates: start: 20180222

REACTIONS (10)
  - Skin discolouration [Recovered/Resolved]
  - Muscle tightness [Recovered/Resolved]
  - Muscular weakness [Recovering/Resolving]
  - Tremor [Recovering/Resolving]
  - Hypokinesia [Recovering/Resolving]
  - Coordination abnormal [Recovering/Resolving]
  - Muscle contractions involuntary [Recovering/Resolving]
  - Hyperhidrosis [Recovered/Resolved]
  - Somnolence [Recovered/Resolved]
  - Muscle spasms [Recovering/Resolving]

NARRATIVE: CASE EVENT DATE: 20180222
